FAERS Safety Report 10426660 (Version 1)
Quarter: 2014Q3

REPORT INFORMATION
  Report Type: Spontaneous
  Country: US (occurrence: None)
  Receive Date: 20140902
  Receipt Date: 20140902
  Transmission Date: 20150326
  Serious: Yes (Other)
  Sender: FDA-Public Use
  Company Number: None

PATIENT
  Age: 17 Year
  Sex: Male
  Weight: 61.24 kg

DRUGS (1)
  1. CLARAVIS [Suspect]
     Active Substance: ISOTRETINOIN
     Indication: ACNE
     Dosage: 3 AND A HALF MONTHS?1 CAPSULE, THREE TIMES DAILY, TAKEN BY MOUTH
     Route: 048

REACTIONS (9)
  - Lethargy [None]
  - Anxiety [None]
  - Stress [None]
  - Mental disorder [None]
  - Mood altered [None]
  - Cognitive disorder [None]
  - Emotional distress [None]
  - Anhedonia [None]
  - Disturbance in attention [None]

NARRATIVE: CASE EVENT DATE: 20140828
